FAERS Safety Report 24444047 (Version 2)
Quarter: 2024Q4

REPORT INFORMATION
  Report Type: Report from Study
  Country: ZA (occurrence: ZA)
  Receive Date: 20241016
  Receipt Date: 20241017
  Transmission Date: 20250115
  Serious: No
  Sender: ROCHE
  Company Number: ZA-ROCHE-2662751

PATIENT
  Age: 74 Year
  Sex: Female

DRUGS (6)
  1. MABTHERA [Suspect]
     Active Substance: RITUXIMAB
     Indication: Rheumatoid arthritis
     Dosage: REPEATED 6-MONTHLY
     Route: 042
     Dates: start: 20150101
  2. RITUXIMAB [Suspect]
     Active Substance: RITUXIMAB
     Indication: Rheumatoid arthritis
     Dosage: REPEATED 6 MONTHLY
     Route: 041
     Dates: start: 20230224
  3. PREDNISONE [Concomitant]
     Active Substance: PREDNISONE
     Dates: start: 200702, end: 201602
  4. METHOTREXATE [Concomitant]
     Active Substance: METHOTREXATE
     Dates: start: 20061101
  5. SULFASALAZINE [Concomitant]
     Active Substance: SULFASALAZINE
     Dates: start: 20061101, end: 20070820
  6. HYDROXYCHLOROQUINE [Concomitant]
     Active Substance: HYDROXYCHLOROQUINE
     Dates: start: 20061101, end: 20070821

REACTIONS (5)
  - C-reactive protein increased [Unknown]
  - Rheumatoid arthritis [Unknown]
  - C-reactive protein increased [Unknown]
  - Rheumatoid arthritis [Unknown]
  - Bronchitis [Unknown]

NARRATIVE: CASE EVENT DATE: 20200814
